FAERS Safety Report 5350441-3 (Version None)
Quarter: 2007Q2

REPORT INFORMATION
  Report Type: 
  Country: None (occurrence: None)
  Receive Date: 20070608
  Receipt Date: 20070531
  Transmission Date: 20071010
  Serious: Yes (Hospitalization, Other)
  Sender: FDA-Public Use
  Company Number: PHHO2007AR09441

PATIENT
  Sex: Female

DRUGS (3)
  1. DIOVAN [Suspect]
     Indication: HYPERTENSION
     Dosage: 160MG
  2. T4 [Concomitant]
  3. VAPRESAN [Concomitant]

REACTIONS (4)
  - DIZZINESS [None]
  - HEART RATE DECREASED [None]
  - HYPERTENSION [None]
  - VOMITING [None]
